FAERS Safety Report 7336021-9 (Version None)
Quarter: 2011Q1

REPORT INFORMATION
  Report Type: 
  Country: None (occurrence: None)
  Receive Date: 20110307
  Receipt Date: 20110224
  Transmission Date: 20110831
  Serious: Yes (Other)
  Sender: FDA-Public Use
  Company Number: US-ELI_LILLY_AND_COMPANY-US201102007283

PATIENT
  Age: 88 Year
  Sex: Female

DRUGS (3)
  1. FORTEO [Suspect]
     Dosage: UNK, UNK
     Dates: start: 20100728
  2. BONIVA [Concomitant]
  3. FORTEO [Suspect]
     Dates: start: 20040101, end: 20061101

REACTIONS (5)
  - BLOOD CALCIUM INCREASED [None]
  - LUNG CARCINOMA CELL TYPE UNSPECIFIED STAGE I [None]
  - INCORRECT DRUG ADMINISTRATION DURATION [None]
  - SPINAL FRACTURE [None]
  - BONE DENSITY ABNORMAL [None]
